FAERS Safety Report 10328115 (Version 1)
Quarter: 2014Q3

REPORT INFORMATION
  Report Type: Spontaneous
  Country: CN (occurrence: CN)
  Receive Date: 20140721
  Receipt Date: 20140721
  Transmission Date: 20150326
  Serious: Yes (Hospitalization, Other)
  Sender: FDA-Public Use
  Company Number: PHHY2014CN088172

PATIENT
  Age: 20 Year
  Sex: Female
  Weight: 52 kg

DRUGS (3)
  1. TEGRETOL [Suspect]
     Active Substance: CARBAMAZEPINE
     Indication: EPILEPSY
  2. PHENOBARBITAL SODIUM. [Concomitant]
     Active Substance: PHENOBARBITAL SODIUM
     Dosage: 0.1 G, QID
     Route: 030
     Dates: start: 20140114, end: 20140204
  3. TEGRETOL [Suspect]
     Active Substance: CARBAMAZEPINE
     Indication: BRAIN CONTUSION
     Dosage: 0.15 G, TID
     Route: 048
     Dates: start: 20140114, end: 20140122

REACTIONS (1)
  - Herpes zoster [Not Recovered/Not Resolved]

NARRATIVE: CASE EVENT DATE: 20140130
